FAERS Safety Report 8403450-1 (Version None)
Quarter: 2012Q2

REPORT INFORMATION
  Report Type: 
  Country: None (occurrence: None)
  Receive Date: 20120601
  Receipt Date: 20120523
  Transmission Date: 20120825
  Serious: Yes (Other)
  Sender: FDA-Public Use
  Company Number: US-JNJFOC-20120519123

PATIENT
  Sex: Female
  Weight: 79.38 kg

DRUGS (10)
  1. CHLORZOXAZONE [Concomitant]
     Indication: TREMOR
     Route: 048
  2. PREMARIN [Concomitant]
     Indication: HYSTERECTOMY
     Dates: start: 20040101
  3. MORPHINE [Concomitant]
     Dosage: AS NEEDED
     Route: 048
  4. MORPHINE [Concomitant]
     Indication: ARTHRALGIA
     Route: 048
     Dates: start: 20110101
  5. EFFEXOR [Concomitant]
     Indication: DEPRESSION
     Route: 048
  6. REMICADE [Suspect]
     Indication: RHEUMATOID ARTHRITIS
     Route: 042
     Dates: start: 20120301
  7. EFFEXOR [Concomitant]
     Indication: ANXIETY
     Route: 048
  8. MORPHINE [Concomitant]
     Dosage: AS NEEDED
     Route: 048
  9. PREDNISONE TAB [Concomitant]
     Indication: RHEUMATOID ARTHRITIS
     Route: 048
     Dates: start: 20110101
  10. MORPHINE [Concomitant]
     Indication: PAIN
     Route: 048
     Dates: start: 20110101

REACTIONS (15)
  - SPLEEN DISORDER [None]
  - PALLOR [None]
  - FEELING HOT [None]
  - FRUSTRATION [None]
  - NEPHROLITHIASIS [None]
  - ISCHAEMIA [None]
  - SPEECH DISORDER [None]
  - GAIT DISTURBANCE [None]
  - DIZZINESS [None]
  - TREMOR [None]
  - MEMORY IMPAIRMENT [None]
  - CEREBRAL ISCHAEMIA [None]
  - VITAMIN D DECREASED [None]
  - VISION BLURRED [None]
  - ASTHENIA [None]
